FAERS Safety Report 4504222-0 (Version None)
Quarter: 2004Q4

REPORT INFORMATION
  Report Type: 
  Country: None (occurrence: None)
  Receive Date: 20041118
  Receipt Date: 20041116
  Transmission Date: 20050328
  Serious: Yes (Death)
  Sender: FDA-Public Use
  Company Number: PHNU2004DE03872

PATIENT
  Age: 79 Year
  Sex: Male
  Weight: 60 kg

DRUGS (2)
  1. LAMISIL [Suspect]
     Indication: ONYCHOMYCOSIS
     Dosage: 250 MG, QD
     Route: 048
     Dates: start: 20030901, end: 20040201
  2. HOMEOPATHIC PREPARATIONS [Concomitant]

REACTIONS (7)
  - APHTHOUS STOMATITIS [None]
  - BONE MARROW DEPRESSION [None]
  - COAGULOPATHY [None]
  - HAEMOGLOBIN DECREASED [None]
  - LEUKOPENIA [None]
  - SEPSIS [None]
  - THROMBOCYTOPENIA [None]
